FAERS Safety Report 9194709 (Version 1)
Quarter: 2013Q1

REPORT INFORMATION
  Report Type: Spontaneous
  Country: US (occurrence: US)
  Receive Date: 20130327
  Receipt Date: 20130327
  Transmission Date: 20140127
  Serious: No
  Sender: FDA-Public Use
  Company Number: US-ALLERGAN-1207578US

PATIENT
  Age: 33 Year
  Sex: Female

DRUGS (2)
  1. LATISSE 0.03% [Suspect]
     Indication: PRODUCT USED FOR UNKNOWN INDICATION
     Dosage: 2 GTT, QD
     Route: 061
     Dates: end: 201205
  2. ARTIFICIAL TEARS                   /00445101/ [Concomitant]
     Indication: PRODUCT USED FOR UNKNOWN INDICATION

REACTIONS (7)
  - Conjunctivitis [Unknown]
  - Hypersensitivity [Unknown]
  - Wrong technique in drug usage process [Unknown]
  - Erythema of eyelid [Unknown]
  - Eye irritation [Unknown]
  - Eyelid oedema [Unknown]
  - Eyelids pruritus [Unknown]
